FAERS Safety Report 16953937 (Version 1)
Quarter: 2019Q4

REPORT INFORMATION
  Report Type: Spontaneous
  Country: US (occurrence: US)
  Receive Date: 20191023
  Receipt Date: 20191023
  Transmission Date: 20200122
  Serious: No
  Sender: FDA-Public Use
  Company Number: US-ABBVIE-19P-163-2875226-00

PATIENT
  Sex: Female

DRUGS (1)
  1. ORILISSA [Suspect]
     Active Substance: ELAGOLIX SODIUM
     Indication: PRODUCT USED FOR UNKNOWN INDICATION
     Route: 048
     Dates: start: 201906, end: 201907

REACTIONS (4)
  - Breast pain [Unknown]
  - Drug hypersensitivity [Unknown]
  - Nausea [Unknown]
  - Vaginal discharge [Unknown]

NARRATIVE: CASE EVENT DATE: 2019
